FAERS Safety Report 10990652 (Version 1)
Quarter: 2015Q2

REPORT INFORMATION
  Report Type: Spontaneous
  Country: IT (occurrence: IT)
  Receive Date: 20150406
  Receipt Date: 20150406
  Transmission Date: 20150821
  Serious: Yes (Hospitalization)
  Sender: FDA-Public Use
  Company Number: IT-BAYER-2015-085778

PATIENT
  Age: 83 Year
  Sex: Male

DRUGS (1)
  1. ACETYLSALICYLIC ACID({=100 MG) [Suspect]
     Active Substance: ASPIRIN
     Indication: THROMBOSIS PROPHYLAXIS
     Dosage: 1 DF, QD
     Route: 048

REACTIONS (6)
  - Aphasia [Unknown]
  - Right hemisphere deficit syndrome [Unknown]
  - Cold sweat [Unknown]
  - Lip disorder [Unknown]
  - Cerebral haemorrhage [Unknown]
  - Drooling [Unknown]

NARRATIVE: CASE EVENT DATE: 20150301
